FAERS Safety Report 4456204-5 (Version None)
Quarter: 2004Q3

REPORT INFORMATION
  Report Type: 
  Country: None (occurrence: None)
  Receive Date: 20040920
  Receipt Date: 20040907
  Transmission Date: 20050211
  Serious: Yes (Other)
  Sender: FDA-Public Use
  Company Number: 2004230394DE

PATIENT
  Age: 47 Year
  Sex: Male
  Weight: 80 kg

DRUGS (9)
  1. SOMAVERT [Suspect]
     Indication: ACROMEGALY
     Dosage: SEE IMAGE
     Route: 058
     Dates: start: 20040212, end: 20040502
  2. SOMAVERT [Suspect]
     Indication: ACROMEGALY
     Dosage: SEE IMAGE
     Route: 058
     Dates: start: 20040503, end: 20040811
  3. SOMAVERT [Suspect]
     Indication: ACROMEGALY
     Dosage: SEE IMAGE
     Route: 058
     Dates: start: 20040812
  4. HYDROCORTISON [Concomitant]
  5. L-THYROZIN (LEVOTHYROXINE SODIUM) [Concomitant]
  6. SOMATULINE [Concomitant]
  7. PRAVIDEL [Concomitant]
  8. DOSTINEX [Concomitant]
  9. SANDOSTATIN [Concomitant]

REACTIONS (3)
  - NEOPLASM RECURRENCE [None]
  - PITUITARY TUMOUR [None]
  - SYNCOPE [None]
